FAERS Safety Report 7297087-8 (Version None)
Quarter: 2011Q1

REPORT INFORMATION
  Report Type: 
  Country: None (occurrence: None)
  Receive Date: 20110216
  Receipt Date: 20110209
  Transmission Date: 20110831
  Serious: No
  Sender: FDA-Public Use
  Company Number: US-PFIZER INC-2011031057

PATIENT
  Sex: Female

DRUGS (1)
  1. ADVIL [Suspect]

REACTIONS (4)
  - CAPSULE PHYSICAL ISSUE [None]
  - GLOSSODYNIA [None]
  - PRODUCT TAMPERING [None]
  - PRODUCT CONTAMINATION PHYSICAL [None]
